FAERS Safety Report 13248172 (Version 1)
Quarter: 2017Q1

REPORT INFORMATION
  Report Type: Spontaneous
  Country: DK (occurrence: DK)
  Receive Date: 20170217
  Receipt Date: 20170217
  Transmission Date: 20170428
  Serious: Yes (Hospitalization, Other)
  Sender: FDA-Public Use
  Company Number: DK-BAUSCH-BL-2017-004166

PATIENT
  Age: 32 Year
  Sex: Female

DRUGS (2)
  1. CLOMIPHENE CITRATE. [Suspect]
     Active Substance: CLOMIPHENE CITRATE
     Indication: OVULATION INDUCTION
     Route: 065
     Dates: start: 2012
  2. PREDNISOLONE. [Suspect]
     Active Substance: PREDNISOLONE
     Indication: IMMUNOSUPPRESSION
     Route: 065

REACTIONS (1)
  - Coccidioidomycosis [Not Recovered/Not Resolved]

NARRATIVE: CASE EVENT DATE: 2015
